FAERS Safety Report 8218484-X (Version None)
Quarter: 2012Q1

REPORT INFORMATION
  Report Type: 
  Country: None (occurrence: None)
  Receive Date: 20120319
  Receipt Date: 20120315
  Transmission Date: 20120608
  Serious: Yes (Other)
  Sender: FDA-Public Use
  Company Number: US-PFIZER INC-2011046950

PATIENT
  Sex: Male
  Weight: 103 kg

DRUGS (1)
  1. POTASSIUM PENCILLIN G [Suspect]

REACTIONS (1)
  - DRUG HYPERSENSITIVITY [None]
